FAERS Safety Report 4582125-3 (Version None)
Quarter: 2005Q1

REPORT INFORMATION
  Report Type: 
  Country: None (occurrence: None)
  Receive Date: 20050119
  Receipt Date: 20040304
  Transmission Date: 20050727
  Serious: Yes (Hospitalization)
  Sender: FDA-Public Use
  Company Number: A03200400683

PATIENT
  Age: 83 Year
  Sex: Female
  Weight: 40.3701 kg

DRUGS (2)
  1. PLAVIX [Suspect]
     Indication: ANGIOPLASTY
     Dosage: 75 MG QD - ORAL
     Route: 048
     Dates: start: 20030510, end: 20031020
  2. PLAVIX [Suspect]
     Indication: STENT PLACEMENT
     Dosage: 75 MG QD - ORAL
     Route: 048
     Dates: start: 20030510, end: 20031020

REACTIONS (2)
  - ASTHENIA [None]
  - GASTROINTESTINAL ULCER HAEMORRHAGE [None]
